FAERS Safety Report 11185718 (Version 1)
Quarter: 2015Q2

REPORT INFORMATION
  Report Type: Report from Study
  Country: FR (occurrence: FR)
  Receive Date: 20150612
  Receipt Date: 20150612
  Transmission Date: 20150821
  Serious: Yes (Hospitalization)
  Sender: FDA-Public Use
  Company Number: FR-GLAXOSMITHKLINE-FR2015GSK082345

PATIENT
  Age: 69 Year
  Sex: Male

DRUGS (6)
  1. CARDENSIEL [Concomitant]
     Active Substance: BISOPROLOL FUMARATE
  2. PLAVIX [Concomitant]
     Active Substance: CLOPIDOGREL BISULFATE
  3. TAHOR [Concomitant]
     Active Substance: ATORVASTATIN CALCIUM
  4. OMEGA-3-ACID ETHYL ESTERS. [Suspect]
     Active Substance: OMEGA-3-ACID ETHYL ESTERS
     Indication: ISCHAEMIC HEART DISEASE PROPHYLAXIS
     Dosage: UNK
     Dates: start: 20070207
  5. KARDEGIC [Concomitant]
     Active Substance: ASPIRIN LYSINE
  6. COVERSYL [Concomitant]
     Active Substance: PERINDOPRIL

REACTIONS (2)
  - Vestibular neuronitis [Unknown]
  - Neuritis [Unknown]

NARRATIVE: CASE EVENT DATE: 20071207
